FAERS Safety Report 7531172-8 (Version None)
Quarter: 2011Q2

REPORT INFORMATION
  Report Type: 
  Country: None (occurrence: None)
  Receive Date: 20110608
  Receipt Date: 20110601
  Transmission Date: 20111010
  Serious: Yes (Death)
  Sender: FDA-Public Use
  Company Number: CA-US-EMD SERONO, INC.-7063107

PATIENT
  Sex: Male

DRUGS (5)
  1. REBIF [Suspect]
     Indication: RELAPSING-REMITTING MULTIPLE SCLEROSIS
     Dates: start: 20090922
  2. CELEXA [Concomitant]
  3. ASPIRIN [Concomitant]
     Dosage: LOW DOSE
  4. HYDROMORPHONE HCL [Concomitant]
  5. NEURONTIN [Concomitant]

REACTIONS (1)
  - DISEASE COMPLICATION [None]
